FAERS Safety Report 15546362 (Version 3)
Quarter: 2019Q1

REPORT INFORMATION
  Report Type: Spontaneous
  Country: BR (occurrence: BR)
  Receive Date: 20181024
  Receipt Date: 20190108
  Transmission Date: 20190417
  Serious: Yes (Other)
  Sender: FDA-Public Use
  Company Number: BR-SA-2018SA152175

PATIENT
  Age: 37 Year
  Sex: Female
  Weight: 74 kg

DRUGS (6)
  1. UTROGESTAN [Concomitant]
     Active Substance: PROGESTERONE
     Indication: ABORTION COMPLICATED
     Dosage: 4 DF
     Route: 067
     Dates: start: 201803
  2. CLEXANE [Suspect]
     Active Substance: ENOXAPARIN SODIUM
     Indication: PROPHYLAXIS
     Dosage: 1 VIAL ONCE DAILY
     Route: 058
     Dates: start: 201803, end: 20181208
  3. UTROGESTAN VAGINAL [Concomitant]
     Indication: PROPHYLAXIS
     Dosage: 4 DF, UNK
     Route: 067
     Dates: start: 201803
  4. AAS [Concomitant]
     Active Substance: ASPIRIN
     Dosage: UNK UNK, QD
     Route: 048
  5. MECLIN [Concomitant]
     Indication: MALAISE
     Dosage: 1 DF, QD
     Route: 048
     Dates: start: 201804
  6. REGENESIS [ALENDRONATE SODIUM] [Concomitant]
     Indication: VITAMIN SUPPLEMENTATION
     Dosage: 1 DF, QD
     Route: 048

REACTIONS (19)
  - Exposure during pregnancy [Unknown]
  - Erythema [Recovered/Resolved]
  - Caesarean section [Unknown]
  - Skin discolouration [Unknown]
  - Poor peripheral circulation [Unknown]
  - Contusion [Unknown]
  - Administration site pain [Unknown]
  - Fibrin D dimer increased [Not Recovered/Not Resolved]
  - Haemorrhage [Recovered/Resolved]
  - Headache [Not Recovered/Not Resolved]
  - Placental disorder [Unknown]
  - Product use issue [Unknown]
  - Unevaluable event [Unknown]
  - Thrombosis [Unknown]
  - Hypersensitivity [Recovered/Resolved]
  - Skin sensitisation [Unknown]
  - Pain [Unknown]
  - Haematoma [Unknown]
  - Adenomyosis [Not Recovered/Not Resolved]

NARRATIVE: CASE EVENT DATE: 20181123
